FAERS Safety Report 6790717-6 (Version None)
Quarter: 2010Q2

REPORT INFORMATION
  Report Type: 
  Country: None (occurrence: None)
  Receive Date: 20100624
  Receipt Date: 20100616
  Transmission Date: 20101027
  Serious: Yes (Hospitalization)
  Sender: FDA-Public Use
  Company Number: SE-ELI_LILLY_AND_COMPANY-SE201004006340

PATIENT
  Sex: Male

DRUGS (10)
  1. BYETTA [Suspect]
     Indication: DIABETES MELLITUS
     Dosage: 10 UG, UNKNOWN
     Route: 058
     Dates: start: 20090101, end: 20100124
  2. METFORMIN HCL [Concomitant]
     Dosage: UNK, UNKNOWN
     Route: 048
     Dates: start: 20000101, end: 20100124
  3. ENALAPRIL + HIDROCLOROTIAZIDA [Concomitant]
     Dosage: UNK, UNKNOWN
     Route: 048
     Dates: start: 20070301, end: 20100124
  4. IPREN [Concomitant]
     Dosage: UNK, UNKNOWN
     Dates: start: 20100101, end: 20100124
  5. INSULATARD [Concomitant]
     Dosage: UNK, UNKNOWN
  6. SIMVASTATIN [Concomitant]
     Dosage: UNK, UNKNOWN
  7. BEHEPAN [Concomitant]
     Dosage: UNK, UNKNOWN
  8. TENORMIN [Concomitant]
     Dosage: UNK, UNKNOWN
  9. TROMBYL [Concomitant]
     Dosage: UNK, UNKNOWN
  10. ALVEDON [Concomitant]
     Dosage: 125 MG, UNK
     Route: 048
     Dates: start: 20100101

REACTIONS (2)
  - HEPATIC FAILURE [None]
  - RENAL FAILURE ACUTE [None]
